FAERS Safety Report 18338913 (Version 1)
Quarter: 2020Q3

REPORT INFORMATION
  Report Type: Spontaneous
  Country: US (occurrence: US)
  Receive Date: 20200923
  Receipt Date: 20200923
  Transmission Date: 20201103
  Serious: Yes (Other)
  Sender: FDA-Public Use
  Company Number: None

PATIENT
  Age: 5 Decade
  Sex: Male

DRUGS (3)
  1. INTERFERON ALFA?2B [Suspect]
     Active Substance: INTERFERON ALFA-2B
     Indication: COVID-19
     Dosage: ?          OTHER DOSE:5000000 U;?
     Route: 030
     Dates: start: 2020
  2. OSELTAMIVIR [Suspect]
     Active Substance: OSELTAMIVIR
     Indication: COVID-19
     Route: 048
     Dates: start: 2020
  3. GANCICLOVIR. [Suspect]
     Active Substance: GANCICLOVIR
     Indication: COVID-19
     Route: 042
     Dates: start: 2020

REACTIONS (2)
  - Liver injury [None]
  - Electrolyte imbalance [None]
